FAERS Safety Report 6590838-7 (Version None)
Quarter: 2010Q1

REPORT INFORMATION
  Report Type: 
  Country: None (occurrence: None)
  Receive Date: 20100219
  Receipt Date: 20100212
  Transmission Date: 20100710
  Serious: Yes (Other)
  Sender: FDA-Public Use
  Company Number: NZ-PFIZER INC-2010018612

PATIENT
  Age: 88 Year
  Sex: Female

DRUGS (1)
  1. HYSITE [Suspect]
     Dosage: UNK
     Dates: start: 20091215

REACTIONS (1)
  - VISUAL ACUITY REDUCED [None]
